FAERS Safety Report 10557618 (Version 1)
Quarter: 2014Q4

REPORT INFORMATION
  Report Type: Spontaneous
  Country: US (occurrence: None)
  Receive Date: 20141029
  Receipt Date: 20141029
  Transmission Date: 20150529
  Serious: Yes (Other)
  Sender: FDA-Public Use
  Company Number: COR_00122_2014

PATIENT
  Age: 15 Year
  Sex: Male

DRUGS (3)
  1. CARBOPLATIN. [Suspect]
     Active Substance: CARBOPLATIN
     Indication: MEDULLOBLASTOMA
     Dosage: (500 MG/M2, ON DAYS -8, -7 AND -6)
  2. THIOTEPA. [Suspect]
     Active Substance: THIOTEPA
     Indication: MEDULLOBLASTOMA
     Dosage: (300 MG/M2, ON DAYS -5, -4, -3)
  3. ETOPOSIDE. [Suspect]
     Active Substance: ETOPOSIDE
     Indication: MEDULLOBLASTOMA
     Dosage: (250 MG/M2, ON DYAS -5, -4, -3)

REACTIONS (11)
  - Blood urea increased [None]
  - Haematotoxicity [None]
  - Toxic epidermal necrolysis [None]
  - Blood creatinine increased [None]
  - Neutropenia [None]
  - Mucosal inflammation [None]
  - Transaminases increased [None]
  - Gastrointestinal inflammation [None]
  - Mental status changes [None]
  - Hypotension [None]
  - Hyperbilirubinaemia [None]
